FAERS Safety Report 15719887 (Version 1)
Quarter: 2018Q4

REPORT INFORMATION
  Report Type: Report from Study
  Country: US (occurrence: US)
  Receive Date: 20181213
  Receipt Date: 20181213
  Transmission Date: 20190205
  Serious: Yes (Hospitalization)
  Sender: FDA-Public Use
  Company Number: US-ADAMAS PHARMA, LLC-2018ADA02746

PATIENT
  Sex: Female
  Weight: 77.1 kg

DRUGS (14)
  1. GOCOVRI [Suspect]
     Active Substance: AMANTADINE
     Dosage: ^DECREASED^
     Route: 048
     Dates: start: 201810, end: 2018
  2. PRAMIPEXOLE. [Concomitant]
     Active Substance: PRAMIPEXOLE
     Dosage: 1 MG, 2-3 TIMES PER DAY
     Route: 048
  3. STOOL SOFTENER (DOCUSATE) [Concomitant]
     Active Substance: DOCUSATE
     Dosage: 100 MG, 1X/DAY AS NEEDED
     Route: 048
  4. GOCOVRI [Suspect]
     Active Substance: AMANTADINE
     Dosage: 274 MG, 1X/DAY AT BEDTIME
     Route: 048
     Dates: start: 20181010, end: 201810
  5. KLOR-CON EXTENDED RELEASE [Concomitant]
     Dosage: 10 MEQ, 1X/DAY WITH FOOD
     Route: 048
  6. MULTIVITAMIN ADULTS 50 + [Concomitant]
     Dosage: 1 TABLETS, 1X/DAY
     Route: 048
  7. EZETIMIBE. [Concomitant]
     Active Substance: EZETIMIBE
     Dosage: 10 MG, 1X/DAY
     Route: 048
  8. ASPIRIN DELAYED RELEASE [Concomitant]
     Active Substance: ASPIRIN
     Dosage: 81 MG, 1X/DAY
     Route: 048
  9. CITRACAL CALCIUM + D [Concomitant]
     Dosage: 1 TABLETS, 2X/DAY
     Route: 048
  10. MEGARED OMEGA-3 KRILL OIL [Concomitant]
     Dosage: 500 MG, 1X/DAY
     Route: 048
  11. NP THYROID [Concomitant]
     Active Substance: LEVOTHYROXINE\LIOTHYRONINE
     Dosage: 90 MG, 1X/DAY ON AN EMPTY STOMACH
     Route: 048
  12. SINEMET [Concomitant]
     Active Substance: CARBIDOPA\LEVODOPA
     Dosage: 1 TABLETS, 7X/DAY
     Route: 048
  13. GOCOVRI [Suspect]
     Active Substance: AMANTADINE
     Indication: DYSKINESIA
     Dosage: 137 MG, 1X/DAY AT BEDTIME
     Route: 048
     Dates: start: 20181003, end: 20181009
  14. ATORVASTATIN [Concomitant]
     Active Substance: ATORVASTATIN
     Dosage: 80 MG, 1X/DAY
     Route: 048

REACTIONS (5)
  - Skin laceration [Recovering/Resolving]
  - Torticollis [Not Recovered/Not Resolved]
  - Balance disorder [Recovering/Resolving]
  - Fall [Recovering/Resolving]
  - Dyskinesia [Recovering/Resolving]

NARRATIVE: CASE EVENT DATE: 2018
